FAERS Safety Report 16068613 (Version 3)
Quarter: 2019Q3

REPORT INFORMATION
  Report Type: Spontaneous
  Country: US (occurrence: US)
  Receive Date: 20190313
  Receipt Date: 20190719
  Transmission Date: 20191004
  Serious: No
  Sender: FDA-Public Use
  Company Number: US-SA-2019SA063910

PATIENT
  Age: 41 Year
  Sex: Male

DRUGS (1)
  1. DUPIXENT [Suspect]
     Active Substance: DUPILUMAB
     Indication: DERMATITIS ATOPIC
     Dosage: 300 MG, QOW
     Route: 058
     Dates: start: 20190219

REACTIONS (5)
  - Erythema [Unknown]
  - Skin exfoliation [Unknown]
  - Incorrect dose administered [Unknown]
  - Periorbital swelling [Unknown]
  - Needle issue [Unknown]

NARRATIVE: CASE EVENT DATE: 20190219
